FAERS Safety Report 4896192-0 (Version None)
Quarter: 2006Q1

REPORT INFORMATION
  Report Type: 
  Country: None (occurrence: None)
  Receive Date: 20060126
  Receipt Date: 20060118
  Transmission Date: 20060701
  Serious: Yes (Hospitalization)
  Sender: FDA-Public Use
  Company Number: 2005BI018545

PATIENT
  Age: 56 Year
  Sex: Male
  Weight: 100.2449 kg

DRUGS (5)
  1. AVONEX [Suspect]
     Indication: MULTIPLE SCLEROSIS
     Dosage: 30 UG; QW; IM
     Route: 030
     Dates: start: 20041016, end: 20050901
  2. BACLOFEN [Concomitant]
  3. AMANTADINE HCL [Concomitant]
  4. ALLOPURINOL [Concomitant]
  5. PRILOSEC [Concomitant]

REACTIONS (4)
  - FATIGUE [None]
  - INFLUENZA LIKE ILLNESS [None]
  - INTRACARDIAC THROMBUS [None]
  - PULMONARY THROMBOSIS [None]
